FAERS Safety Report 5816013-9 (Version None)
Quarter: 2008Q3

REPORT INFORMATION
  Report Type: 
  Country: None (occurrence: None)
  Receive Date: 20080721
  Receipt Date: 20080711
  Transmission Date: 20090109
  Serious: Yes (Hospitalization)
  Sender: FDA-Public Use
  Company Number: PHHY2008JP14393

PATIENT
  Age: 65 Year
  Sex: Female

DRUGS (7)
  1. DIOVAN [Suspect]
     Route: 048
  2. BONALON [Concomitant]
     Dosage: 5 MG, UNK
     Route: 048
  3. D ALFA [Concomitant]
     Route: 048
  4. MUCOSTA [Concomitant]
  5. PRAVASTATIN [Concomitant]
     Route: 048
  6. GLAKAY [Concomitant]
     Route: 048
  7. AMLODIPINE [Concomitant]
     Route: 048

REACTIONS (3)
  - ECZEMA [None]
  - HYPERSENSITIVITY [None]
  - NEPHROTIC SYNDROME [None]
